FAERS Safety Report 10273625 (Version 1)
Quarter: 2014Q1

REPORT INFORMATION
  Report Type: Spontaneous
  Country: US (occurrence: None)
  Receive Date: 20140306
  Receipt Date: 20140306
  Transmission Date: 20141002
  Serious: Yes (Hospitalization)
  Sender: FDA-Public Use
  Company Number: 163-21880-13092393

PATIENT
  Age: 86 Year
  Sex: Male

DRUGS (15)
  1. REVLIMID [Suspect]
     Indication: PLASMA CELL MYELOMA
     Route: 048
     Dates: start: 20130702, end: 20130714
  2. FINASTERIDE (FINASTERIDE) [Concomitant]
  3. ATORVASTATIN (ATORVASTATIN) [Concomitant]
  4. FEXOFENADINE (FEXOFENADINE) (FEXOFENADINE) [Concomitant]
  5. OMEPRAZOLE (OMEPRAZOLE) [Concomitant]
  6. WARFARIN(WARFARIN) [Concomitant]
  7. ACYCLOVIR (ACICLOVIR) (ACICLOVIR) [Concomitant]
  8. FLUCONAZOLE (FLUCONAZOLE) [Concomitant]
  9. PROSCAR (FINASTERIDE) [Concomitant]
  10. PRILOSEC (OMEPRAZOLE) [Concomitant]
  11. LIPITOR (ATORVASTATIN) [Concomitant]
  12. OXYCODONE (OXYCODONE) [Concomitant]
  13. ASPIRIN [Concomitant]
  14. ALLEGRA (FEXOFENADINE HYDROCHLORIDE) [Concomitant]
  15. FUROSEMIDE (FUROSEMIDE) [Concomitant]

REACTIONS (5)
  - Neutropenic sepsis [None]
  - Febrile neutropenia [None]
  - Hypotension [None]
  - Malaise [None]
  - Tachycardia [None]
